FAERS Safety Report 21914924 (Version 2)
Quarter: 2023Q1

REPORT INFORMATION
  Report Type: Report from Study
  Country: PL (occurrence: PL)
  Receive Date: 20230126
  Receipt Date: 20230131
  Transmission Date: 20230417
  Serious: Yes (Hospitalization)
  Sender: FDA-Public Use
  Company Number: PL-EXELIXIS-XL18422049426

PATIENT

DRUGS (4)
  1. CABOZANTINIB [Suspect]
     Active Substance: CABOZANTINIB
     Indication: Metastatic renal cell carcinoma
     Dosage: 60 MG, QD
     Route: 048
     Dates: start: 20211103
  2. ATEZOLIZUMAB [Suspect]
     Active Substance: ATEZOLIZUMAB
     Indication: Metastatic renal cell carcinoma
     Dosage: 1200 MG, Q3WEEKS
     Route: 042
     Dates: start: 20211103
  3. Taromentin [Concomitant]
     Indication: Abdominal pain
     Dosage: 1000 MG, QD
     Route: 048
     Dates: start: 20220215, end: 20220222
  4. Metoclopramidum [Concomitant]
     Indication: Abdominal pain
     Dosage: 10 MG, QD
     Route: 042
     Dates: start: 20220215, end: 20220215

REACTIONS (2)
  - Gastroenteritis [Recovered/Resolved]
  - Ascites [Recovered/Resolved]

NARRATIVE: CASE EVENT DATE: 20220215
